FAERS Safety Report 20404586 (Version 2)
Quarter: 2022Q1

REPORT INFORMATION
  Report Type: Report from Study
  Country: FR (occurrence: FR)
  Receive Date: 20220131
  Receipt Date: 20220210
  Transmission Date: 20220424
  Serious: Yes (Hospitalization)
  Sender: FDA-Public Use
  Company Number: FR-SERVIER-S22000753

PATIENT

DRUGS (6)
  1. PEGASPARGASE [Suspect]
     Active Substance: PEGASPARGASE
     Indication: Acute lymphocytic leukaemia
     Dosage: 825 IU, D12, D26
     Route: 042
     Dates: start: 20211215
  2. DEXAMETHASONE [Suspect]
     Active Substance: DEXAMETHASONE
     Indication: Acute lymphocytic leukaemia
     Dosage: 30 MG, D1 TO D28
     Route: 048
     Dates: start: 20211211, end: 20211231
  3. VINCRISTINE [Suspect]
     Active Substance: VINCRISTINE
     Indication: Acute lymphocytic leukaemia
     Dosage: 1 MG, D8, D15, D22, D29
     Route: 042
     Dates: start: 20211211, end: 20220101
  4. MERCAPTOPURINE [Suspect]
     Active Substance: MERCAPTOPURINE
     Indication: Acute lymphocytic leukaemia
     Dosage: 30 MG, D1 TO D21 CONSOLIDATION
     Route: 048
     Dates: start: 20220110, end: 20220116
  5. TN UNSPECIFIED [Concomitant]
     Indication: Acute lymphocytic leukaemia
     Dosage: 12 MG, D1, D13, D24 INDUCTION
     Route: 037
     Dates: start: 20211203, end: 20211227
  6. TN UNSPECIFIED [Concomitant]
     Indication: Acute lymphocytic leukaemia
     Dosage: 40 MG, D8, D15, D22, D29
     Route: 048
     Dates: start: 20211204, end: 20211210

REACTIONS (4)
  - Cough [Recovering/Resolving]
  - Tachycardia [Recovering/Resolving]
  - Pain in extremity [Recovering/Resolving]
  - Pyrexia [Recovering/Resolving]

NARRATIVE: CASE EVENT DATE: 20220110
